FAERS Safety Report 15831184 (Version 2)
Quarter: 2019Q1

REPORT INFORMATION
  Report Type: Spontaneous
  Country: NL (occurrence: NL)
  Receive Date: 20190116
  Receipt Date: 20190214
  Transmission Date: 20190417
  Serious: Yes (Hospitalization)
  Sender: FDA-Public Use
  Company Number: NL-AUROBINDO-AUR-APL-2018-010320

PATIENT

DRUGS (5)
  1. OXALIPLATIN. [Suspect]
     Active Substance: OXALIPLATIN
     Indication: COLORECTAL CANCER
     Dosage: 170 MILLIGRAM/SQ. METER, EVERY WEEK, 85 MG/M2, QW2
     Route: 042
     Dates: start: 20170413
  2. AVASTIN [Suspect]
     Active Substance: BEVACIZUMAB
     Indication: COLORECTAL CANCER
     Dosage: 10 MILLIGRAM/KILOGRAM, EVERY WEEK, 5 MG/KG, QW2
     Route: 042
     Dates: start: 20170413
  3. 5-FLUOROURACIL [Suspect]
     Active Substance: FLUOROURACIL
     Indication: COLORECTAL CANCER
     Dosage: 6400 MILLIGRAM/SQ. METER, EVERY WEEK, 3200 MG/M2, QW2
     Route: 042
     Dates: start: 20170413
  4. IRINOTECAN [Suspect]
     Active Substance: IRINOTECAN
     Indication: COLORECTAL CANCER
     Dosage: 330 MILLIGRAM/SQ. METER, EVERY WEEK, 165 MG/M2, QW2
     Route: 042
     Dates: start: 20170413
  5. LEUCOVORIN. [Suspect]
     Active Substance: LEUCOVORIN
     Indication: COLORECTAL CANCER
     Dosage: 800 MILLIGRAM/SQ. METER, 400 MG/M2, QW2
     Route: 042
     Dates: start: 20170413

REACTIONS (2)
  - Dehydration [Recovered/Resolved]
  - Diarrhoea [Recovered/Resolved]

NARRATIVE: CASE EVENT DATE: 20170420
